FAERS Safety Report 7818700-X (Version None)
Quarter: 2011Q4

REPORT INFORMATION
  Report Type: 
  Country: None (occurrence: None)
  Receive Date: 20111018
  Receipt Date: 20111010
  Transmission Date: 20120403
  Serious: No
  Sender: FDA-Public Use
  Company Number: US-BIOGENIDEC-2011BI038954

PATIENT
  Age: 62 Year
  Sex: Female

DRUGS (1)
  1. AVONEX [Suspect]
     Indication: MULTIPLE SCLEROSIS
     Route: 030
     Dates: start: 20110929, end: 20111010

REACTIONS (5)
  - BLOOD PRESSURE INCREASED [None]
  - ASTHENIA [None]
  - BLOOD POTASSIUM INCREASED [None]
  - PARAESTHESIA [None]
  - OEDEMA PERIPHERAL [None]
